FAERS Safety Report 14345520 (Version 10)
Quarter: 2019Q2

REPORT INFORMATION
  Report Type: Report from Study
  Country: GB (occurrence: GB)
  Receive Date: 20180103
  Receipt Date: 20190503
  Transmission Date: 20190711
  Serious: Yes (Hospitalization, Disabling)
  Sender: FDA-Public Use
  Company Number: GB-ASTRAZENECA-2017SF33231

PATIENT
  Age: 23068 Day
  Sex: Male
  Weight: 62 kg

DRUGS (23)
  1. METOCLOPRAMIDE. [Concomitant]
     Active Substance: METOCLOPRAMIDE
     Indication: VOMITING
     Route: 048
     Dates: start: 20170711
  2. DOCUSATE SODIUM. [Concomitant]
     Active Substance: DOCUSATE SODIUM
     Indication: CONSTIPATION
     Dosage: 100.0MG AS REQUIRED
     Route: 048
     Dates: start: 20171217, end: 20171219
  3. MULTIVITAMIN [Concomitant]
     Active Substance: VITAMINS
     Indication: NUTRITIONAL SUPPLEMENTATION
     Route: 048
     Dates: start: 20170615
  4. AZD6738 [Suspect]
     Active Substance: CERALASERTIB
     Indication: NEOPLASM
     Route: 048
     Dates: start: 20171212, end: 20171216
  5. PHOSPHATE ENEMA [Concomitant]
     Active Substance: SODIUM PHOSPHATE, DIBASIC\SODIUM PHOSPHATE, MONOBASIC
     Indication: CONSTIPATION
     Dosage: 1.0IU ONCE/SINGLE ADMINISTRATION
     Route: 054
     Dates: start: 20171217, end: 20171217
  6. AZD6738 [Suspect]
     Active Substance: CERALASERTIB
     Indication: NEOPLASM
     Route: 048
     Dates: start: 20171010, end: 20171016
  7. ASPIRIN. [Concomitant]
     Active Substance: ASPIRIN
     Indication: PERIPHERAL VASCULAR DISORDER
     Route: 048
     Dates: start: 201501, end: 20171227
  8. COCODAMOL [Concomitant]
     Active Substance: ACETAMINOPHEN\CODEINE PHOSPHATE
     Indication: GASTROOESOPHAGEAL REFLUX DISEASE
     Dosage: 2.0DF AS REQUIRED
     Route: 048
     Dates: start: 20170612
  9. DOCUSATE SODIUM. [Concomitant]
     Active Substance: DOCUSATE SODIUM
     Indication: CONSTIPATION
     Dosage: 100.0MG AS REQUIRED
     Route: 048
     Dates: start: 20170727, end: 20171216
  10. DOCUSATE SODIUM. [Concomitant]
     Active Substance: DOCUSATE SODIUM
     Indication: CONSTIPATION
     Dosage: 100.0MG AS REQUIRED
     Route: 048
     Dates: start: 20171220
  11. LANSOPRAZOLE. [Concomitant]
     Active Substance: LANSOPRAZOLE
     Indication: GASTROOESOPHAGEAL REFLUX DISEASE
     Route: 048
     Dates: start: 20170612
  12. LANSOPRAZOLE. [Concomitant]
     Active Substance: LANSOPRAZOLE
     Indication: PROPHYLAXIS
     Route: 048
     Dates: start: 20170612
  13. LANSOPRAZOLE. [Concomitant]
     Active Substance: LANSOPRAZOLE
     Indication: PROPHYLAXIS
     Route: 048
     Dates: start: 20171227
  14. METOCLOPRAMIDE. [Concomitant]
     Active Substance: METOCLOPRAMIDE
     Indication: NAUSEA
     Route: 048
     Dates: start: 20170711
  15. LAXIDO [Concomitant]
     Active Substance: POLYETHYLENE GLYCOL 3350\POTASSIUM CHLORIDE\SODIUM BICARBONATE\SODIUM CHLORIDE
     Indication: CONSTIPATION
     Dosage: 1 SACHET, TWO TIMES DAILY, AS REQUIRED
     Route: 048
     Dates: start: 20171217
  16. AZD6738 [Suspect]
     Active Substance: CERALASERTIB
     Indication: NEOPLASM
     Route: 048
     Dates: start: 20171107, end: 20171113
  17. AZD6738 [Suspect]
     Active Substance: CERALASERTIB
     Indication: NEOPLASM
     Route: 048
     Dates: start: 20171217, end: 20171217
  18. MEDI4736 [Suspect]
     Active Substance: DURVALUMAB
     Indication: NEOPLASM
     Route: 042
     Dates: start: 20171017, end: 20171017
  19. SIMVASTATIN. [Concomitant]
     Active Substance: SIMVASTATIN
     Indication: PERIPHERAL VASCULAR DISORDER
     Route: 048
     Dates: start: 201501
  20. AZD6738 [Suspect]
     Active Substance: CERALASERTIB
     Indication: NEOPLASM
     Route: 048
     Dates: start: 20171218, end: 20190108
  21. MACROGOL [Concomitant]
     Active Substance: POLYETHYLENE GLYCOLS
     Indication: CONSTIPATION
     Dosage: 1 SACHET, AS REQUIRED, DAILY
     Route: 048
     Dates: start: 20170704
  22. MEDI4736 [Suspect]
     Active Substance: DURVALUMAB
     Indication: NEOPLASM
     Route: 042
     Dates: start: 20171114, end: 20171114
  23. LANSOPRAZOLE. [Concomitant]
     Active Substance: LANSOPRAZOLE
     Indication: GASTROOESOPHAGEAL REFLUX DISEASE
     Route: 048
     Dates: start: 20171227

REACTIONS (1)
  - Guillain-Barre syndrome [Recovered/Resolved]

NARRATIVE: CASE EVENT DATE: 20171218
